FAERS Safety Report 7419557-1 (Version None)
Quarter: 2011Q2

REPORT INFORMATION
  Report Type: 
  Country: None (occurrence: None)
  Receive Date: 20110412
  Receipt Date: 20110412
  Transmission Date: 20111010
  Serious: No
  Sender: FDA-Public Use
  Company Number: None

PATIENT
  Age: 48 Year
  Sex: Female
  Weight: 83 kg

DRUGS (1)
  1. METHYLENE BLUE 1%-10 MG/ML AMERICAN REGENT [Suspect]
     Indication: METHAEMOGLOBINAEMIA
     Dosage: 2 MG/KG-166MG-IN 50ML NS ONCE OVER-12 MIN IV DRIP
     Route: 041
     Dates: start: 20110406, end: 20110406

REACTIONS (1)
  - BLINDNESS TRANSIENT [None]
